FAERS Safety Report 10961797 (Version 8)
Quarter: 2017Q1

REPORT INFORMATION
  Report Type: Report from Study
  Country: PL (occurrence: PL)
  Receive Date: 20150327
  Receipt Date: 20170213
  Transmission Date: 20170428
  Serious: Yes (Hospitalization)
  Sender: FDA-Public Use
  Company Number: PHHY2015PL032092

PATIENT
  Age: 64 Year
  Sex: Female
  Weight: 69 kg

DRUGS (2)
  1. TASIGNA [Suspect]
     Active Substance: NILOTINIB
     Indication: CHRONIC MYELOID LEUKAEMIA
     Dosage: 400 MG, BID
     Route: 048
     Dates: start: 201104, end: 201608
  2. LETROX [Concomitant]
     Active Substance: LEVOTHYROXINE SODIUM
     Indication: HYPOTHYROIDISM
     Dosage: 100 MG (MONDAY TO FRIDAY) AND 75 MG (SATURDAY - SUNDAY)
     Route: 048
     Dates: start: 201104

REACTIONS (7)
  - Peripheral swelling [Not Recovered/Not Resolved]
  - Therapeutic response decreased [Unknown]
  - Neck pain [Not Recovered/Not Resolved]
  - Arthritis [Recovering/Resolving]
  - Burning sensation [Not Recovered/Not Resolved]
  - Arthralgia [Not Recovered/Not Resolved]
  - Body temperature increased [Not Recovered/Not Resolved]

NARRATIVE: CASE EVENT DATE: 201502
